FAERS Safety Report 8344065-3 (Version None)
Quarter: 2012Q2

REPORT INFORMATION
  Report Type: 
  Country: None (occurrence: None)
  Receive Date: 20120508
  Receipt Date: 20110208
  Transmission Date: 20120825
  Serious: Yes (Other)
  Sender: FDA-Public Use
  Company Number: US-TEVA-2011000625

PATIENT

DRUGS (1)
  1. TREANDA [Suspect]

REACTIONS (1)
  - INFUSION SITE EXTRAVASATION [None]
